FAERS Safety Report 14842174 (Version 1)
Quarter: 2018Q2

REPORT INFORMATION
  Report Type: Spontaneous
  Country: MX (occurrence: MX)
  Receive Date: 20180503
  Receipt Date: 20180503
  Transmission Date: 20180711
  Serious: Yes (Death, Other)
  Sender: FDA-Public Use
  Company Number: MX-JNJFOC-20180500713

PATIENT
  Sex: Female

DRUGS (1)
  1. XARELTO [Suspect]
     Active Substance: RIVAROXABAN
     Indication: PRODUCT USED FOR UNKNOWN INDICATION
     Route: 048
     Dates: start: 20160405, end: 20180420

REACTIONS (9)
  - Hypertension [Fatal]
  - Pharyngo-oesophageal diverticulum [Unknown]
  - Cerebral infarction [Fatal]
  - Upper airway obstruction [Unknown]
  - Chronic obstructive pulmonary disease [Fatal]
  - Neoplasm progression [Unknown]
  - Aphasia [Unknown]
  - Feeding disorder [Unknown]
  - Pharyngeal neoplasm benign [Unknown]
